FAERS Safety Report 8105893-2 (Version None)
Quarter: 2012Q1

REPORT INFORMATION
  Report Type: 
  Country: None (occurrence: None)
  Receive Date: 20120202
  Receipt Date: 20120125
  Transmission Date: 20120608
  Serious: No
  Sender: FDA-Public Use
  Company Number: US-BIOGENIDEC-2011BI047808

PATIENT
  Age: 37 Year
  Sex: Female

DRUGS (3)
  1. IBUPROFEN [Concomitant]
  2. TYSABRI [Suspect]
     Indication: MULTIPLE SCLEROSIS
     Route: 042
     Dates: start: 20090721
  3. PROVIGIL [Concomitant]

REACTIONS (1)
  - MULTIPLE SCLEROSIS RELAPSE [None]
